FAERS Safety Report 6096516-5 (Version None)
Quarter: 2009Q1

REPORT INFORMATION
  Report Type: 
  Country: None (occurrence: None)
  Receive Date: 20090225
  Receipt Date: 20090225
  Transmission Date: 20090719
  Serious: Yes (Other)
  Sender: FDA-Public Use
  Company Number: None

PATIENT
  Age: 87 Year
  Sex: Female
  Weight: 63.05 kg

DRUGS (4)
  1. NITROFURANTOIN [Suspect]
     Indication: CYSTITIS
     Dosage: FOR 21 DAYS 2 A DAY
     Dates: start: 20090204
  2. NITROFURANTOIN [Suspect]
     Indication: URINARY TRACT INFECTION
     Dosage: FOR 21 DAYS 2 A DAY
     Dates: start: 20090204
  3. NITROFURANTOIN [Suspect]
     Indication: CYSTITIS
     Dosage: FOR 21 DAYS 2 A DAY
     Dates: start: 20090205
  4. NITROFURANTOIN [Suspect]
     Indication: URINARY TRACT INFECTION
     Dosage: FOR 21 DAYS 2 A DAY
     Dates: start: 20090205

REACTIONS (4)
  - ABASIA [None]
  - HEMIPLEGIA [None]
  - HYPOAESTHESIA [None]
  - PARAESTHESIA [None]
